FAERS Safety Report 16625686 (Version 1)
Quarter: 2019Q3

REPORT INFORMATION
  Report Type: Spontaneous
  Country: US (occurrence: US)
  Receive Date: 20190612
  Receipt Date: 20190612
  Transmission Date: 20191004
  Serious: No
  Sender: FDA-Public Use
  Company Number: None

PATIENT
  Age: 29 Year
  Sex: Female

DRUGS (1)
  1. SYMDEKO [Suspect]
     Active Substance: IVACAFTOR\TEZACAFTOR
     Indication: CYSTIC FIBROSIS
     Dates: start: 20190531

REACTIONS (5)
  - Fatigue [None]
  - Migraine [None]
  - Headache [None]
  - Somnolence [None]
  - Nausea [None]

NARRATIVE: CASE EVENT DATE: 20190612
